FAERS Safety Report 9788888 (Version 1)
Quarter: 2013Q4

REPORT INFORMATION
  Report Type: Spontaneous
  Country: GB (occurrence: GB)
  Receive Date: 20131230
  Receipt Date: 20131230
  Transmission Date: 20140711
  Serious: Yes (Other)
  Sender: FDA-Public Use
  Company Number: GB-GLAXOSMITHKLINE-B0955306A

PATIENT
  Age: 64 Year
  Sex: Male

DRUGS (5)
  1. MALARONE [Suspect]
     Indication: MALARIA PROPHYLAXIS
     Dosage: 1IUAX PER DAY
     Route: 048
     Dates: start: 20131202, end: 20131204
  2. ATENOLOL [Concomitant]
     Indication: ATRIAL FIBRILLATION
     Dosage: 1IUAX PER DAY
     Route: 048
  3. ATORVASTATIN [Concomitant]
     Indication: ATRIAL FIBRILLATION
     Dosage: 1IUAX PER DAY
     Route: 048
  4. CIPROFLOXACIN [Concomitant]
     Indication: FOOD POISONING
     Route: 048
     Dates: start: 20131203, end: 20131210
  5. IMODIUM [Concomitant]
     Indication: FOOD POISONING
     Route: 048
     Dates: start: 20131203, end: 20131210

REACTIONS (1)
  - Nightmare [Recovered/Resolved]
